FAERS Safety Report 4727439-9 (Version None)
Quarter: 2005Q3

REPORT INFORMATION
  Report Type: 
  Country: None (occurrence: None)
  Receive Date: 20050727
  Receipt Date: 20050727
  Transmission Date: 20060218
  Serious: Yes (Life-Threatening)
  Sender: FDA-Public Use
  Company Number: None

PATIENT
  Age: 60 Year
  Sex: Female
  Weight: 53.0709 kg

DRUGS (14)
  1. MIDAZOLOM [Suspect]
     Indication: SEDATION
     Dosage: 5 MG IV OTO
     Route: 042
     Dates: start: 20050209
  2. FENTANYL [Suspect]
     Indication: SEDATION
     Dosage: 100 MCG IV OTO
     Route: 042
     Dates: start: 20050209
  3. TIKOSYN [Concomitant]
  4. AVAPRO [Concomitant]
  5. ASPIRIN [Concomitant]
  6. FOSAMAX [Concomitant]
  7. PREDNISONE [Concomitant]
  8. PREVACID [Concomitant]
  9. AMBIEN [Concomitant]
  10. KLONOPIN [Concomitant]
  11. M.V.I. [Concomitant]
  12. CA [Concomitant]
  13. TYLENOL (CAPLET) [Concomitant]
  14. CO Q [Concomitant]

REACTIONS (6)
  - CARDIO-RESPIRATORY ARREST [None]
  - COUGH [None]
  - LARYNGOSPASM [None]
  - OXYGEN SATURATION DECREASED [None]
  - PROCEDURAL COMPLICATION [None]
  - STRIDOR [None]
